FAERS Safety Report 9382238 (Version 1)
Quarter: 2013Q3

REPORT INFORMATION
  Report Type: Spontaneous
  Country: US (occurrence: US)
  Receive Date: 20130703
  Receipt Date: 20130703
  Transmission Date: 20140515
  Serious: No
  Sender: FDA-Public Use
  Company Number: US-PFIZER INC-2013194973

PATIENT
  Age: 53 Year
  Sex: Female

DRUGS (9)
  1. AMOXICILLIN [Suspect]
     Dosage: UNK
  2. LIPITOR [Suspect]
     Dosage: UNK
  3. CEFOXITIN SODIUM [Suspect]
     Dosage: UNK
  4. TORADOL [Suspect]
     Dosage: UNK
  5. ZOCOR [Suspect]
     Dosage: UNK
  6. CIPRO [Suspect]
  7. LEVAQUIN [Suspect]
     Dosage: UNK
  8. COREG [Suspect]
     Dosage: UNK
  9. SULFUR [Suspect]
     Dosage: UNK

REACTIONS (1)
  - Drug hypersensitivity [Unknown]
